FAERS Safety Report 7756536-9 (Version None)
Quarter: 2011Q3

REPORT INFORMATION
  Report Type: 
  Country: None (occurrence: None)
  Receive Date: 20110916
  Receipt Date: 20110906
  Transmission Date: 20111222
  Serious: Yes (Other)
  Sender: FDA-Public Use
  Company Number: CA-ABBOTT-11P-028-0847932-03

PATIENT
  Sex: Male
  Weight: 59 kg

DRUGS (28)
  1. PREDNISONE [Concomitant]
     Route: 048
     Dates: start: 20100901, end: 20101001
  2. ACETAMINOPHEN [Concomitant]
     Indication: HEADACHE
     Dates: start: 19950601
  3. NEORAL [Concomitant]
     Dosage: AT NIGHT
     Dates: start: 20091003
  4. PANTOPRAZOLE SODIUM [Concomitant]
     Indication: GASTROINTESTINAL HAEMORRHAGE
     Route: 048
     Dates: start: 20101019
  5. IMURAN [Concomitant]
     Indication: PROPHYLAXIS AGAINST TRANSPLANT REJECTION
  6. PREDNISONE [Concomitant]
     Dates: start: 20090128, end: 20090506
  7. PREDNISONE [Concomitant]
     Dates: start: 20090507, end: 20100901
  8. IMURAN [Concomitant]
     Indication: CROHN'S DISEASE
     Dates: start: 19950801
  9. APO-NAPROSYN [Concomitant]
     Indication: ARTHRALGIA
     Dosage: TWICE A DAY BUT AS NEEDED
     Dates: start: 20081101
  10. HUMIRA [Suspect]
     Dosage: ONCE
     Route: 058
  11. HUMIRA [Suspect]
     Route: 058
  12. HUMIRA [Suspect]
     Route: 058
     Dates: start: 20080813
  13. PREDNISONE [Concomitant]
     Indication: DRUG DEPENDENCE
     Dates: start: 20110324
  14. PANTOPRAZOLE SODIUM [Concomitant]
     Indication: PROPHYLAXIS AGAINST GASTROINTESTINAL ULCER
  15. HUMIRA [Suspect]
     Route: 058
     Dates: end: 20110803
  16. PALAFER [Concomitant]
     Indication: ANAEMIA
     Dates: start: 20081201
  17. TYLENOL-500 [Concomitant]
     Indication: ARTHRALGIA
     Dates: start: 20090801
  18. MAGNESIUM SULFATE [Concomitant]
     Indication: HYPOMAGNESAEMIA
     Route: 042
     Dates: start: 20110717, end: 20110717
  19. AVELOX [Concomitant]
     Indication: CHOLANGITIS
     Route: 042
     Dates: start: 20110716
  20. VANCOMYCIN [Concomitant]
     Indication: CHOLANGITIS
     Route: 042
     Dates: start: 20110716
  21. CARBOCAL D [Concomitant]
     Indication: OSTEOPOROSIS PROPHYLAXIS
  22. NEORAL [Concomitant]
     Indication: PROPHYLAXIS AGAINST TRANSPLANT REJECTION
     Dates: start: 19950801, end: 20091002
  23. NEORAL [Concomitant]
     Dates: start: 20091003
  24. HUMIRA [Suspect]
     Indication: CROHN'S DISEASE
     Dosage: ONCE
     Route: 058
     Dates: start: 20080408, end: 20080408
  25. PREDNISONE [Concomitant]
     Indication: CROHN'S DISEASE
     Dosage: IN SLOW TAPERING
     Dates: start: 20080125, end: 20090127
  26. CARBOCAL D [Concomitant]
     Indication: STEROID THERAPY
     Dates: start: 19990501
  27. TYLENOL-500 [Concomitant]
     Indication: PYREXIA
     Dosage: 2 TABLETS ONCE
     Route: 048
     Dates: start: 20110716, end: 20110716
  28. GRAVOL TAB [Concomitant]
     Indication: NAUSEA
     Route: 042
     Dates: start: 20110716, end: 20110716

REACTIONS (1)
  - GASTROINTESTINAL MUCOSAL DISORDER [None]
